FAERS Safety Report 8543830 (Version 3)
Quarter: 2012Q4

REPORT INFORMATION
  Report Type: 
  Country: BR (occurrence: BR)
  Receive Date: 20120503
  Receipt Date: 20121122
  Transmission Date: 20130627
  Serious: Yes (Other)
  Sender: FDA-Public Use
  Company Number: PHHY2012BR036170

PATIENT
  Age: 84 Year
  Sex: Male
  Weight: 91 kg

DRUGS (10)
  1. DIOVAN [Suspect]
     Indication: BLOOD PRESSURE ABNORMAL
     Dosage: 25 mg, daily
     Dates: start: 2003, end: 2008
  2. DIOVAN [Suspect]
     Indication: CARDIAC DISORDER
  3. FORASEQ [Suspect]
     Indication: CHRONIC OBSTRUCTIVE PULMONARY DISEASE
     Dosage: 3 DF (3 aspirations), daily (12 mcg formo and 400 mg bude)
     Dates: start: 2003
  4. FUROSEMIDE [Concomitant]
     Dosage: 1 DF, daily
     Route: 048
     Dates: start: 2006
  5. SIMVASTATIN [Concomitant]
     Dosage: 1 DF, daily
     Route: 048
     Dates: start: 2006
  6. SPIRONOLACTONE [Concomitant]
     Dosage: 1 DF, daily
     Route: 048
     Dates: start: 2006
  7. OMEPRAZOLE [Concomitant]
     Dosage: 1 DF, daily
     Route: 048
     Dates: start: 2006
  8. ARADOIS [Concomitant]
     Dosage: 1 DF, daily
     Route: 048
     Dates: start: 2008
  9. CONCOR [Concomitant]
     Dosage: 1 DF, daily
     Route: 048
     Dates: start: 2009
  10. VASTAREL [Concomitant]
     Dosage: 1 DF, daily
     Route: 048
     Dates: start: 2009

REACTIONS (7)
  - Neoplasm malignant [Recovered/Resolved]
  - Cardiac failure [Unknown]
  - Chronic obstructive pulmonary disease [Unknown]
  - Obstructive airways disorder [Unknown]
  - Colon cancer [Unknown]
  - Hypertension [Unknown]
  - Wrong technique in drug usage process [Unknown]
